FAERS Safety Report 17935819 (Version 1)
Quarter: 2020Q2

REPORT INFORMATION
  Report Type: Spontaneous
  Country: AR (occurrence: AR)
  Receive Date: 20200624
  Receipt Date: 20200624
  Transmission Date: 20200714
  Serious: Yes (Other)
  Sender: FDA-Public Use
  Company Number: AR-AMGEN-ARGSP2020098640

PATIENT
  Age: 69 Year
  Sex: Female

DRUGS (1)
  1. ENBREL [Suspect]
     Active Substance: ETANERCEPT
     Indication: RHEUMATOID ARTHRITIS
     Dosage: 50 MG, WEEKLY
     Route: 065
     Dates: start: 20150122

REACTIONS (10)
  - Spinal disorder [Unknown]
  - Loss of personal independence in daily activities [Unknown]
  - Pneumonia [Unknown]
  - Peripheral swelling [Unknown]
  - Thyroid disorder [Unknown]
  - Fibromyalgia [Unknown]
  - Panic attack [Unknown]
  - Cardiac disorder [Unknown]
  - Rheumatoid arthritis [Unknown]
  - Pain [Unknown]
